FAERS Safety Report 8075263-4 (Version None)
Quarter: 2012Q1

REPORT INFORMATION
  Report Type: 
  Country: None (occurrence: None)
  Receive Date: 20120127
  Receipt Date: 20120119
  Transmission Date: 20120608
  Serious: Yes (Hospitalization, Other)
  Sender: FDA-Public Use
  Company Number: US-BAYER-2011-118220

PATIENT
  Age: 37 Year
  Sex: Female

DRUGS (9)
  1. YASMIN [Suspect]
     Dosage: UNK
     Route: 048
     Dates: start: 20060401, end: 20100301
  2. PROPOXYPHENE HYDROCHLORIDE [Concomitant]
     Dosage: UNK
     Dates: start: 20091205
  3. HYDROCODONE BITARTRATE AND ACETAMINOPHEN [Concomitant]
     Dosage: UNK
     Dates: start: 20100207
  4. MECLIZINE [Concomitant]
     Dosage: UNK
     Dates: start: 20100126
  5. YAZ [Suspect]
     Dosage: UNK
     Route: 048
     Dates: start: 20060401, end: 20100301
  6. ZANTAC [Concomitant]
     Dosage: UNK UNK, BID
     Dates: start: 20100122
  7. CYMBALTA [Concomitant]
     Dosage: UNK
     Dates: start: 20100207
  8. OXYCODONE HCL AND ACETAMINOPHEN [Concomitant]
     Dosage: UNK
     Dates: start: 20100212
  9. CELEBREX [Concomitant]
     Dosage: UNK
     Dates: start: 20091205

REACTIONS (4)
  - INJURY [None]
  - PULMONARY EMBOLISM [None]
  - THROMBOSIS [None]
  - DEEP VEIN THROMBOSIS [None]
